FAERS Safety Report 16974836 (Version 1)
Quarter: 2019Q4

REPORT INFORMATION
  Report Type: Spontaneous
  Country: CN (occurrence: CN)
  Receive Date: 20191030
  Receipt Date: 20191030
  Transmission Date: 20200122
  Serious: Yes (Hospitalization)
  Sender: FDA-Public Use
  Company Number: CN-ASTRAZENECA-2019SF52162

PATIENT
  Sex: Male
  Weight: 5.8 kg

DRUGS (2)
  1. SODIUM CHLORIDE. [Concomitant]
     Active Substance: SODIUM CHLORIDE
     Indication: PROPHYLAXIS
     Dates: start: 20191010
  2. PULMICORT RESPULES [Suspect]
     Active Substance: BUDESONIDE
     Indication: PROPHYLAXIS
     Route: 055
     Dates: start: 20191010

REACTIONS (3)
  - Diarrhoea [Recovering/Resolving]
  - Rash [Recovering/Resolving]
  - Cough [Recovering/Resolving]

NARRATIVE: CASE EVENT DATE: 20191010
